APPROVED DRUG PRODUCT: FLUDEOXYGLUCOSE F18
Active Ingredient: FLUDEOXYGLUCOSE F-18
Strength: 4-40mCi/ML
Dosage Form/Route: INJECTABLE;INTRAVENOUS
Application: A203811 | Product #001 | TE Code: AP
Applicant: UCLA BIOMEDICAL CYCLOTRON
Approved: Jun 27, 2013 | RLD: No | RS: Yes | Type: RX